FAERS Safety Report 24676832 (Version 1)
Quarter: 2024Q4

REPORT INFORMATION
  Report Type: Spontaneous
  Country: BR (occurrence: BR)
  Receive Date: 20241128
  Receipt Date: 20241128
  Transmission Date: 20250115
  Serious: Yes (Other)
  Sender: JOHNSON AND JOHNSON
  Company Number: BR-JNJFOC-20241117795

PATIENT
  Age: 88 Year
  Sex: Male

DRUGS (1)
  1. ERLEADA [Suspect]
     Active Substance: APALUTAMIDE
     Indication: Neoplasm malignant
     Route: 048

REACTIONS (3)
  - Foreign body in throat [Unknown]
  - Dysphagia [Unknown]
  - Product shape issue [Unknown]
